FAERS Safety Report 16620610 (Version 1)
Quarter: 2019Q3

REPORT INFORMATION
  Report Type: Spontaneous
  Country: CN (occurrence: CN)
  Receive Date: 20190723
  Receipt Date: 20190723
  Transmission Date: 20191004
  Serious: Yes (Other)
  Sender: FDA-Public Use
  Company Number: CN-FERRINGPH-2019FE04346

PATIENT

DRUGS (1)
  1. PROPESS [Suspect]
     Active Substance: DINOPROSTONE
     Indication: INDUCTION OF CERVIX RIPENING
     Dosage: 10 MG, DAILY
     Route: 064
     Dates: start: 20190704, end: 20190704

REACTIONS (1)
  - Foetal arrhythmia [Recovered/Resolved]

NARRATIVE: CASE EVENT DATE: 20190704
